FAERS Safety Report 4634670-X (Version None)
Quarter: 2005Q2

REPORT INFORMATION
  Report Type: 
  Country: None (occurrence: None)
  Receive Date: 20050413
  Receipt Date: 20050413
  Transmission Date: 20051028
  Serious: Yes (Death)
  Sender: FDA-Public Use
  Company Number: None

PATIENT
  Age: 56 Year
  Sex: Female
  Weight: 51.2565 kg

DRUGS (22)
  1. CYMBALTA [Suspect]
     Indication: DEPRESSION
     Dosage: 30 MG DAILY ORAL
     Route: 048
     Dates: start: 20050330
  2. CYMBALTA [Suspect]
     Indication: DIABETIC NEUROPATHY
     Dosage: 30 MG DAILY ORAL
     Route: 048
     Dates: start: 20050330
  3. CYMBALTA [Suspect]
     Indication: DEPRESSION
     Dosage: 30 MG DAILY ORAL
     Route: 048
     Dates: start: 20050401
  4. CYMBALTA [Suspect]
     Indication: DIABETIC NEUROPATHY
     Dosage: 30 MG DAILY ORAL
     Route: 048
     Dates: start: 20050401
  5. SILVER SULFADIAZINE [Concomitant]
  6. FEXOFENADINE HYDROCHLORIDE [Concomitant]
  7. PROPOXPHENE NAPSALATE/ACETAMINOPHEN [Concomitant]
  8. SODUIM CHLORIDE FLUSH [Concomitant]
  9. PANTOPRAZOLE SODIUM [Concomitant]
  10. LEVOFLOXACIN [Concomitant]
  11. ESOMEPRAZOLE [Concomitant]
  12. POTASSIUM CHLORIDE [Concomitant]
  13. CARVEDILOL [Concomitant]
  14. ASPIRIN [Concomitant]
  15. ENALAPRIL [Concomitant]
  16. FUROSEMIDE [Concomitant]
  17. ALPRAZOLAM [Concomitant]
  18. DIGOXIN [Concomitant]
  19. INSULIN HUMAN REGULAR [Concomitant]
  20. GLUCOSE GEL [Concomitant]
  21. GLUCAGON [Concomitant]
  22. DEXTROSE [Concomitant]

REACTIONS (2)
  - BLOOD GLUCOSE DECREASED [None]
  - BLOOD POTASSIUM INCREASED [None]
